FAERS Safety Report 18736788 (Version 1)
Quarter: 2021Q1

REPORT INFORMATION
  Report Type: Spontaneous
  Country: IN (occurrence: IN)
  Receive Date: 20210113
  Receipt Date: 20210113
  Transmission Date: 20210419
  Serious: Yes (Hospitalization)
  Sender: FDA-Public Use
  Company Number: IN-MYLANLABS-2021M1001772

PATIENT
  Age: 47 Year
  Sex: Female

DRUGS (3)
  1. ONDANSETRON [Suspect]
     Active Substance: ONDANSETRON
     Indication: PROCEDURAL NAUSEA
     Dosage: 4 MILLIGRAM
     Route: 040
  2. ONDANSETRON [Interacting]
     Active Substance: ONDANSETRON
     Indication: PROCEDURAL VOMITING
  3. LEVOTHYROXINE. [Interacting]
     Active Substance: LEVOTHYROXINE
     Indication: HYPOTHYROIDISM
     Dosage: 50 MICROGRAM, QD
     Route: 065

REACTIONS (2)
  - Drug interaction [Recovered/Resolved]
  - Atrial fibrillation [Recovered/Resolved]
